FAERS Safety Report 18008072 (Version 1)
Quarter: 2020Q3

REPORT INFORMATION
  Report Type: Spontaneous
  Country: ES (occurrence: ES)
  Receive Date: 20200710
  Receipt Date: 20200710
  Transmission Date: 20201103
  Serious: Yes (Hospitalization, Other)
  Sender: FDA-Public Use
  Company Number: ES-JNJFOC-20200621512

PATIENT
  Age: 72 Year
  Sex: Male

DRUGS (3)
  1. RAMIPRIL. [Concomitant]
     Active Substance: RAMIPRIL
     Indication: ESSENTIAL HYPERTENSION
     Dosage: 10 MILLIGRAM, 1/DAY
     Route: 048
     Dates: start: 20160118
  2. TRAMADOL/APAP [Suspect]
     Active Substance: ACETAMINOPHEN\TRAMADOL
     Indication: ARTHRALGIA
     Dosage: 1 DOSAGE FORM, EVERY 12 HRS
     Route: 048
     Dates: start: 20200225
  3. DIAZEPAM. [Interacting]
     Active Substance: DIAZEPAM
     Indication: ESSENTIAL HYPERTENSION
     Dosage: 10 MILLIGRAM, 1/DAY
     Route: 048
     Dates: start: 20200418

REACTIONS (2)
  - Drug interaction [Unknown]
  - Fall [Recovering/Resolving]

NARRATIVE: CASE EVENT DATE: 20200601
